FAERS Safety Report 4637910-6 (Version None)
Quarter: 2005Q2

REPORT INFORMATION
  Report Type: 
  Country: None (occurrence: None)
  Receive Date: 20050328
  Receipt Date: 20050120
  Transmission Date: 20051028
  Serious: No
  Sender: FDA-Public Use
  Company Number: USA050188924

PATIENT
  Age: 28 Year
  Sex: Male

DRUGS (6)
  1. STRATTERA [Suspect]
     Indication: ATTENTION DEFICIT/HYPERACTIVITY DISORDER
     Dosage: 40 MG DAY
     Dates: start: 20050119
  2. ALBUTEROL [Concomitant]
  3. AUGMENTIN '125' [Concomitant]
  4. OXYMETAZOLINE [Concomitant]
  5. SUDAFED 12 HOUR [Concomitant]
  6. ZICAM (ZINC GLUCONATE) [Concomitant]

REACTIONS (10)
  - CHILLS [None]
  - DYSURIA [None]
  - FEELING ABNORMAL [None]
  - HEART RATE INCREASED [None]
  - HOT FLUSH [None]
  - HYPERHIDROSIS [None]
  - PARAESTHESIA [None]
  - PILOERECTION [None]
  - PROSTATIC PAIN [None]
  - SOMNOLENCE [None]
